FAERS Safety Report 8145850-3 (Version None)
Quarter: 2012Q1

REPORT INFORMATION
  Report Type: 
  Country: None (occurrence: None)
  Receive Date: 20120217
  Receipt Date: 20110512
  Transmission Date: 20120608
  Serious: No
  Sender: FDA-Public Use
  Company Number: US-ABBOTT-11P-163-0725203-00

PATIENT
  Sex: Male
  Weight: 104.42 kg

DRUGS (3)
  1. CO Q10 [Concomitant]
     Indication: PRODUCT USED FOR UNKNOWN INDICATION
  2. ASPIRIN [Concomitant]
     Indication: PRODUCT USED FOR UNKNOWN INDICATION
     Dosage: AT HOUR OF SLEEP
  3. SIMCOR [Suspect]
     Indication: ARTERIOSCLEROSIS
     Dosage: 500/20MG, AT HOUR OF SLEEP
     Dates: start: 20110401, end: 20110509

REACTIONS (5)
  - SLUGGISHNESS [None]
  - MENTAL IMPAIRMENT [None]
  - FEELING ABNORMAL [None]
  - DYSARTHRIA [None]
  - FATIGUE [None]
